FAERS Safety Report 4317705-3 (Version None)
Quarter: 2004Q1

REPORT INFORMATION
  Report Type: 
  Country: None (occurrence: None)
  Receive Date: 20040315
  Receipt Date: 20040225
  Transmission Date: 20041129
  Serious: Yes (Other)
  Sender: FDA-Public Use
  Company Number: PHBS2004BR02714

PATIENT
  Age: 43 Year
  Sex: Male

DRUGS (5)
  1. TEGRETOL [Suspect]
     Indication: SCHIZOPHRENIA
     Dosage: 1 TABLET/DAY
     Route: 048
     Dates: end: 20040223
  2. PHENOBARBITAL TAB [Suspect]
     Dosage: 1 TABLET/DAY
     Route: 048
  3. HALOPERIDOL [Concomitant]
     Route: 048
     Dates: end: 20040223
  4. DIAZEPAM [Concomitant]
     Route: 048
     Dates: end: 20040223
  5. PAMELOR [Suspect]
     Route: 065

REACTIONS (3)
  - COORDINATION ABNORMAL [None]
  - NERVOUS SYSTEM DISORDER [None]
  - SOMNOLENCE [None]
